FAERS Safety Report 12970454 (Version 2)
Quarter: 2016Q4

REPORT INFORMATION
  Report Type: Spontaneous
  Country: DE (occurrence: DE)
  Receive Date: 20161123
  Receipt Date: 20161130
  Transmission Date: 20170207
  Serious: Yes (Hospitalization)
  Sender: FDA-Public Use
  Company Number: DE-PFIZER INC-2016539844

PATIENT
  Age: 47 Year
  Sex: Female
  Weight: 83 kg

DRUGS (9)
  1. TREVILOR RETARD [Suspect]
     Active Substance: VENLAFAXINE HYDROCHLORIDE
     Indication: DEPRESSION
     Dosage: 150 MG, DAILY
     Route: 048
  2. EUTHYROX [Concomitant]
     Active Substance: LEVOTHYROXINE SODIUM
     Indication: CONGENITAL HYPOTHYROIDISM
     Dosage: 50 UG, DAILY
     Route: 048
  3. TERBIDERM [Interacting]
     Active Substance: TERBINAFINE HYDROCHLORIDE
     Dosage: 250 MG, WEEKLY
     Route: 048
     Dates: start: 20160529, end: 20160620
  4. TERBIDERM [Interacting]
     Active Substance: TERBINAFINE HYDROCHLORIDE
     Dosage: 250 MG, 1X/DAY
     Route: 048
     Dates: start: 20160927, end: 20161031
  5. EUTHYROX [Concomitant]
     Active Substance: LEVOTHYROXINE SODIUM
     Indication: HYPOTHYROIDIC GOITRE
  6. TERBIDERM [Interacting]
     Active Substance: TERBINAFINE HYDROCHLORIDE
     Dosage: 250 MG, 1X/DAY
     Route: 048
     Dates: start: 20160621, end: 20160719
  7. TERBIDERM [Interacting]
     Active Substance: TERBINAFINE HYDROCHLORIDE
     Dosage: ^BETWEEN DOSE CHANGES^
     Route: 048
  8. TERBIDERM [Interacting]
     Active Substance: TERBINAFINE HYDROCHLORIDE
     Dosage: 250 MG, 1X/DAY
     Route: 048
     Dates: start: 20160419, end: 20160528
  9. OLANZAPINE. [Concomitant]
     Active Substance: OLANZAPINE
     Indication: SCHIZOAFFECTIVE DISORDER
     Dosage: 20 MG, DAILY
     Route: 048
     Dates: start: 20160927

REACTIONS (5)
  - Sleep disorder [Unknown]
  - Delirium [Unknown]
  - Depression [Unknown]
  - Drug level changed [Recovered/Resolved]
  - Drug interaction [Recovered/Resolved]

NARRATIVE: CASE EVENT DATE: 2016
